FAERS Safety Report 4583641-0 (Version None)
Quarter: 2005Q1

REPORT INFORMATION
  Report Type: 
  Country: None (occurrence: None)
  Receive Date: 20050211
  Receipt Date: 20050202
  Transmission Date: 20050727
  Serious: Yes (Death)
  Sender: FDA-Public Use
  Company Number: USA-2005-0018656

PATIENT
  Age: 54 Year
  Sex: Female

DRUGS (7)
  1. OXYCONTIN [Suspect]
     Indication: PAIN
     Dosage: 80 MG, Q12H
  2. CYMBALTA [Concomitant]
  3. LITHIUM (LITHIUM) [Concomitant]
  4. XANAX [Concomitant]
  5. PROMETRIUM [Concomitant]
  6. DOXEPIN HCL [Concomitant]
  7. PHENERGAN [Concomitant]

REACTIONS (1)
  - VOMITING [None]
